FAERS Safety Report 7471946-5 (Version None)
Quarter: 2011Q2

REPORT INFORMATION
  Report Type: 
  Country: None (occurrence: None)
  Receive Date: 20110511
  Receipt Date: 20100809
  Transmission Date: 20111010
  Serious: No
  Sender: FDA-Public Use
  Company Number: A0874613A

PATIENT
  Age: 82 Year
  Sex: Female

DRUGS (3)
  1. RADIATION THERAPY [Concomitant]
  2. TYKERB [Suspect]
     Indication: BREAST CANCER
     Dosage: 5TAB PER DAY
     Route: 048
     Dates: start: 20100101, end: 20100101
  3. IMODIUM [Concomitant]

REACTIONS (4)
  - SKIN ULCER [None]
  - DYSPHAGIA [None]
  - DIARRHOEA [None]
  - PHARYNGEAL OEDEMA [None]
